FAERS Safety Report 9460834 (Version 2)
Quarter: 2013Q3

REPORT INFORMATION
  Report Type: Spontaneous
  Country: US (occurrence: US)
  Receive Date: 20130816
  Receipt Date: 20130913
  Transmission Date: 20140515
  Serious: No
  Sender: FDA-Public Use
  Company Number: US-009507513-1308USA001478

PATIENT
  Age: 64 Year
  Sex: Female

DRUGS (2)
  1. NASONEX [Suspect]
     Indication: SEASONAL ALLERGY
     Dosage: 50 MCG/ TWO SPRAYS IN EACH NOSTRIL, TWICE DAILY
     Route: 045
     Dates: start: 201306
  2. METFORMIN [Concomitant]

REACTIONS (2)
  - Drug ineffective [Recovering/Resolving]
  - Headache [Recovering/Resolving]
